FAERS Safety Report 4558702-2 (Version None)
Quarter: 2005Q1

REPORT INFORMATION
  Report Type: 
  Country: None (occurrence: None)
  Receive Date: 20050121
  Receipt Date: 20050121
  Transmission Date: 20050727
  Serious: No
  Sender: FDA-Public Use
  Company Number: None

PATIENT
  Age: 27 Year
  Sex: Female

DRUGS (1)
  1. PHENERGAN HYDROCHLORIDE TAB [Suspect]
     Indication: NAUSEA
     Dosage: 25 MG PO PRN
     Route: 048

REACTIONS (6)
  - MUSCLE SPASMS [None]
  - NAUSEA [None]
  - PARAESTHESIA [None]
  - PRURITUS [None]
  - TONGUE DISORDER [None]
  - VOMITING [None]
